FAERS Safety Report 17555391 (Version 1)
Quarter: 2020Q1

REPORT INFORMATION
  Report Type: Spontaneous
  Country: US (occurrence: US)
  Receive Date: 20200318
  Receipt Date: 20200318
  Transmission Date: 20200409
  Serious: No
  Sender: FDA-Public Use
  Company Number: US-VERTEX PHARMACEUTICALS-2020-005383

PATIENT
  Age: 27 Year
  Sex: Female

DRUGS (1)
  1. TRIKAFTA [Suspect]
     Active Substance: ELEXACAFTOR\IVACAFTOR\TEZACAFTOR
     Indication: CYSTIC FIBROSIS
     Dosage: ELEXACAFTOR 100MG/ TEZACAFTOR 50MG/ IVACAFTOR 75MG, IVACAFTOR 150MG, BID
     Route: 048
     Dates: start: 201912

REACTIONS (6)
  - Blood glucose decreased [Unknown]
  - Eye pruritus [Not Recovered/Not Resolved]
  - Arthralgia [Unknown]
  - Diarrhoea [Not Recovered/Not Resolved]
  - Lacrimation increased [Not Recovered/Not Resolved]
  - Ocular hyperaemia [Unknown]

NARRATIVE: CASE EVENT DATE: 201912
